FAERS Safety Report 5053555-0 (Version None)
Quarter: 2006Q2

REPORT INFORMATION
  Report Type: 
  Country: None (occurrence: None)
  Receive Date: 20060614
  Receipt Date: 20060403
  Transmission Date: 20061013
  Serious: Yes (Other)
  Sender: FDA-Public Use
  Company Number: 443254

PATIENT
  Sex: Female

DRUGS (1)
  1. BONIVA [Suspect]
     Dosage: ORAL
     Route: 048

REACTIONS (4)
  - DIARRHOEA [None]
  - NAUSEA [None]
  - STOMACH DISCOMFORT [None]
  - TOOTH ABSCESS [None]
